FAERS Safety Report 8521373-4 (Version None)
Quarter: 2012Q3

REPORT INFORMATION
  Report Type: 
  Country: None (occurrence: None)
  Receive Date: 20120712
  Receipt Date: 20120712
  Transmission Date: 20120928
  Serious: Yes (Other)
  Sender: FDA-Public Use
  Company Number: None

PATIENT
  Sex: Male

DRUGS (1)
  1. ENBREL [Suspect]
     Dosage: 25MG TWICE A WEEK SQ
     Route: 058
     Dates: start: 20120430

REACTIONS (5)
  - PARAESTHESIA [None]
  - COUGH [None]
  - SNEEZING [None]
  - NEURALGIA [None]
  - HYPOAESTHESIA [None]
